FAERS Safety Report 10374693 (Version 1)
Quarter: 2014Q1

REPORT INFORMATION
  Report Type: Spontaneous
  Country: US (occurrence: None)
  Receive Date: 20140306
  Receipt Date: 20140306
  Transmission Date: 20141002
  Serious: Yes (Hospitalization)
  Sender: FDA-Public Use
  Company Number: 163-21880-13063432

PATIENT
  Age: 67 Year
  Sex: Male

DRUGS (9)
  1. REVLIMID (LENALIDOMIDE) (25 MILLIGRAM, CAPSULES) [Suspect]
     Indication: PLASMA CELL MYELOMA
     Route: 048
     Dates: start: 20130603
  2. ALBUTEROL SULFATE (SALBUTAMOL SULFATE) [Concomitant]
  3. ATIVAN (LORAZEPAM) [Concomitant]
  4. CIPRO (CIPROFLOXACIN) [Concomitant]
  5. DEXAMETHASONE (DEXAMETHASONE) [Concomitant]
  6. FENTANYL (FENTANYL) [Concomitant]
  7. LASIX (FUROSEMIDE) [Concomitant]
  8. MORPHINE SULFATE ER (MORPHINE SULFATE) [Concomitant]
  9. OXYCODONE HCL (OXYCODONE HYDROCHLORIDE) [Concomitant]

REACTIONS (1)
  - Pain [None]
